FAERS Safety Report 7495085 (Version 4)
Quarter: 2014Q1

REPORT INFORMATION
  Report Type: Report from Study
  Country: DE (occurrence: DE)
  Receive Date: 20100722
  Receipt Date: 20140327
  Transmission Date: 20141002
  Serious: Yes (Hospitalization)
  Sender: FDA-Public Use
  Company Number: DE-ROCHE-713407

PATIENT
  Age: 72 Year
  Sex: Male
  Weight: 67.1 kg

DRUGS (21)
  1. MYCOPHENOLATE MOFETIL [Suspect]
     Indication: RENAL TRANSPLANT
     Dosage: TEMPORARILY INTERRUPTED. LAST DOSE PRIOR TO SAE: 01 JULY 2010.2-O-2.
     Route: 048
     Dates: start: 20100522, end: 20100702
  2. MYCOPHENOLATE MOFETIL [Suspect]
     Route: 048
  3. MYCOPHENOLATE MOFETIL [Suspect]
     Route: 048
  4. MYCOPHENOLATE MOFETIL [Suspect]
     Dosage: AFTER DISCHARGE
     Route: 048
  5. THYMOGLOBULIN [Suspect]
     Indication: RENAL TRANSPLANT
     Dosage: DOSAGE FORM: INFUSION. LAST DOSE PRIOR TO SAE: 27 MAY 2010.
     Route: 042
  6. TACROLIMUS [Suspect]
     Indication: RENAL TRANSPLANT
     Dosage: LAST DOSE PRIOR TO SAE: 01 JULY 2010.
     Route: 048
  7. PREDNISOLONE [Suspect]
     Indication: RENAL TRANSPLANT
     Dosage: LAST DOSE PRIOR TO SAE: 29 MAY 2010.
     Route: 048
     Dates: start: 20100522
  8. ATACAND [Concomitant]
     Dosage: 2DF/D BLOPRESS 16 MG
     Route: 065
  9. PANTOPRAZOLE [Concomitant]
     Dosage: 1 DOSE DAILY
     Route: 065
  10. BISOPROLOL [Concomitant]
     Route: 065
  11. BISOPROLOL [Concomitant]
     Route: 065
  12. DIGITOXIN [Concomitant]
     Dosage: TTD 1DOSE FORM /DAY  DRUG NAME DOGITOIN 0.07 (5D/WEEK)
     Route: 065
  13. NEORECORMON [Concomitant]
     Dosage: TDD:5000 IE.
     Route: 065
  14. ACETYLSALICYLIC ACID [Concomitant]
     Dosage: ASS
     Route: 065
  15. FLUVASTATIN [Concomitant]
     Dosage: DRUG REPORTED AS LOCAL.
     Route: 065
  16. FURORESE [Concomitant]
  17. AMLODIPIN [Concomitant]
     Dosage: 2DF/D
     Route: 065
  18. LIPOX RETARD [Concomitant]
     Dosage: 1DF/D LOCOL RETARD 80
     Route: 065
  19. CALCITRIOL [Concomitant]
     Dosage: CACLITRIOL 0.25
     Route: 065
  20. COTRIM [Concomitant]
     Dosage: COTRIM 480
     Route: 065
  21. ARANESP [Concomitant]
     Dosage: ARANESP 60 MICRO/GR (1DF/WEEK)
     Route: 065

REACTIONS (6)
  - General physical health deterioration [Recovered/Resolved]
  - Diarrhoea [Recovered/Resolved]
  - Pyrexia [Unknown]
  - Cytomegalovirus infection [Not Recovered/Not Resolved]
  - Leukopenia [Recovered/Resolved with Sequelae]
  - Pyrexia [Not Recovered/Not Resolved]
